FAERS Safety Report 19841471 (Version 5)
Quarter: 2022Q1

REPORT INFORMATION
  Report Type: Report from Study
  Country: CA (occurrence: CA)
  Receive Date: 20210915
  Receipt Date: 20220104
  Transmission Date: 20220423
  Serious: Yes (Other)
  Sender: FDA-Public Use
  Company Number: CA-TAKEDA-2020TUS060468

PATIENT
  Age: 46 Year
  Sex: Female
  Weight: 59 kg

DRUGS (40)
  1. TEDUGLUTIDE [Suspect]
     Active Substance: TEDUGLUTIDE
     Indication: Short-bowel syndrome
     Dosage: 0.29 MILLILITER, QOD
     Route: 065
     Dates: start: 20201217
  2. TEDUGLUTIDE [Suspect]
     Active Substance: TEDUGLUTIDE
     Indication: Short-bowel syndrome
     Dosage: 0.29 MILLILITER, QOD
     Route: 065
     Dates: start: 20201217
  3. TEDUGLUTIDE [Suspect]
     Active Substance: TEDUGLUTIDE
     Indication: Short-bowel syndrome
     Dosage: 0.29 MILLILITER, QOD
     Route: 065
     Dates: start: 20201217
  4. TEDUGLUTIDE [Suspect]
     Active Substance: TEDUGLUTIDE
     Indication: Short-bowel syndrome
     Dosage: 0.29 MILLILITER, QOD
     Route: 065
     Dates: start: 20201217
  5. TEDUGLUTIDE [Suspect]
     Active Substance: TEDUGLUTIDE
     Dosage: 0.29 MILLIGRAM, QD
     Route: 065
     Dates: start: 20201217
  6. TEDUGLUTIDE [Suspect]
     Active Substance: TEDUGLUTIDE
     Dosage: 0.29 MILLIGRAM, QD
     Route: 065
     Dates: start: 20201217
  7. TEDUGLUTIDE [Suspect]
     Active Substance: TEDUGLUTIDE
     Dosage: 0.29 MILLIGRAM, QD
     Route: 065
     Dates: start: 20201217
  8. TEDUGLUTIDE [Suspect]
     Active Substance: TEDUGLUTIDE
     Dosage: 0.29 MILLIGRAM, QD
     Route: 065
     Dates: start: 20201217
  9. TEDUGLUTIDE [Suspect]
     Active Substance: TEDUGLUTIDE
     Dosage: 0.29 MILLIGRAM, QD
     Route: 065
     Dates: start: 20201217
  10. TEDUGLUTIDE [Suspect]
     Active Substance: TEDUGLUTIDE
     Dosage: 0.29 MILLIGRAM, QD
     Route: 065
     Dates: start: 20201217
  11. TEDUGLUTIDE [Suspect]
     Active Substance: TEDUGLUTIDE
     Dosage: 0.29 MILLIGRAM, QD
     Route: 065
     Dates: start: 20201217
  12. TEDUGLUTIDE [Suspect]
     Active Substance: TEDUGLUTIDE
     Dosage: 0.29 MILLIGRAM, QD
     Route: 065
     Dates: start: 20201217
  13. TEDUGLUTIDE [Suspect]
     Active Substance: TEDUGLUTIDE
     Dosage: 2.90 MILLIGRAM, QD
     Route: 065
     Dates: start: 20201217
  14. TEDUGLUTIDE [Suspect]
     Active Substance: TEDUGLUTIDE
     Dosage: 2.90 MILLIGRAM, QD
     Route: 065
     Dates: start: 20201217
  15. TEDUGLUTIDE [Suspect]
     Active Substance: TEDUGLUTIDE
     Dosage: 2.90 MILLIGRAM, QD
     Route: 065
     Dates: start: 20201217
  16. TEDUGLUTIDE [Suspect]
     Active Substance: TEDUGLUTIDE
     Dosage: 2.90 MILLIGRAM, QD
     Route: 065
     Dates: start: 20201217
  17. TEDUGLUTIDE [Suspect]
     Active Substance: TEDUGLUTIDE
     Dosage: 2.62 MILLIGRAM, QOD
     Route: 065
     Dates: start: 20201217
  18. TEDUGLUTIDE [Suspect]
     Active Substance: TEDUGLUTIDE
     Dosage: 2.62 MILLIGRAM, QOD
     Route: 065
     Dates: start: 20201217
  19. TEDUGLUTIDE [Suspect]
     Active Substance: TEDUGLUTIDE
     Dosage: 2.62 MILLIGRAM, QOD
     Route: 065
     Dates: start: 20201217
  20. TEDUGLUTIDE [Suspect]
     Active Substance: TEDUGLUTIDE
     Dosage: 2.62 MILLIGRAM, QOD
     Route: 065
     Dates: start: 20201217
  21. TPN [Concomitant]
     Active Substance: AMINO ACIDS\DEXTROSE\ELECTROLYTES NOS\SOYBEAN OIL
     Dosage: 1500 MILLILITER, 2/WEEK
     Route: 065
  22. TPN [Concomitant]
     Active Substance: AMINO ACIDS\DEXTROSE\ELECTROLYTES NOS\SOYBEAN OIL
     Dosage: 2200 MILLILITER, 3/WEEK
     Route: 065
  23. TPN [Concomitant]
     Active Substance: AMINO ACIDS\DEXTROSE\ELECTROLYTES NOS\SOYBEAN OIL
     Dosage: 1500 MILLILITER, 3/WEEK
     Route: 065
  24. TPN [Concomitant]
     Active Substance: AMINO ACIDS\DEXTROSE\ELECTROLYTES NOS\SOYBEAN OIL
     Dosage: 1500 MILLILITER, 2/WEEK
     Route: 065
     Dates: end: 20210610
  25. TPN [Concomitant]
     Active Substance: AMINO ACIDS\DEXTROSE\ELECTROLYTES NOS\SOYBEAN OIL
     Dosage: 1500 MILLILITER, 4/WEEK
     Route: 065
     Dates: start: 20210929
  26. HYDRATION VITAMIN [Concomitant]
     Dosage: 1000 MILLILITER, MONTHLY
     Route: 042
     Dates: start: 202005
  27. FOSAMAX [Concomitant]
     Active Substance: ALENDRONATE SODIUM
     Dosage: 70 MILLIGRAM, 1/WEEK
     Route: 065
  28. PANTOPRAZOLE SODIUM [Concomitant]
     Active Substance: PANTOPRAZOLE SODIUM
     Dosage: 40 MILLIGRAM, QD
     Route: 065
  29. IMODIUM [Concomitant]
     Active Substance: LOPERAMIDE HYDROCHLORIDE
     Dosage: 2 DOSAGE FORM, QD
     Route: 065
  30. IMODIUM [Concomitant]
     Active Substance: LOPERAMIDE HYDROCHLORIDE
     Dosage: 4 DOSAGE FORM, QD
     Route: 065
  31. IRON [Concomitant]
     Active Substance: IRON
     Dosage: 300 MILLIGRAM, QD
     Route: 065
  32. CALCIUM [Concomitant]
     Active Substance: CALCIUM
     Dosage: 1200 MILLIGRAM, QD
     Route: 065
  33. VITAMIN D3 [Concomitant]
     Active Substance: CHOLECALCIFEROL
     Dosage: 800 MILLIGRAM, QD
     Route: 065
  34. VITAMIN D [Concomitant]
     Active Substance: VITAMIN D NOS
     Dosage: 1000 INTERNATIONAL UNIT, QD
     Route: 065
  35. VITAMINS [Concomitant]
     Active Substance: VITAMINS
     Dosage: UNK UNK, QD
     Route: 065
  36. ADVIL [Concomitant]
     Active Substance: IBUPROFEN
     Dosage: UNK
     Route: 065
  37. GRAVOL [Concomitant]
     Active Substance: DIMENHYDRINATE
     Dosage: UNK
     Route: 065
  38. TYLENOL [Concomitant]
     Active Substance: ACETAMINOPHEN
     Indication: Trigger finger
     Dosage: UNK
     Route: 065
  39. CODEINE [Concomitant]
     Active Substance: CODEINE
     Dosage: UNK
  40. MAGNESIUM [Concomitant]
     Active Substance: MAGNESIUM
     Dosage: UNK

REACTIONS (29)
  - Thyroid hormones increased [Not Recovered/Not Resolved]
  - Peripheral swelling [Recovered/Resolved]
  - Weight increased [Not Recovered/Not Resolved]
  - Skin swelling [Not Recovered/Not Resolved]
  - Pain [Not Recovered/Not Resolved]
  - Faeces soft [Not Recovered/Not Resolved]
  - Thirst [Unknown]
  - Frequent bowel movements [Recovering/Resolving]
  - Swelling [Recovering/Resolving]
  - Injection site bruising [Unknown]
  - Fatigue [Unknown]
  - Chromaturia [Unknown]
  - Nocturia [Unknown]
  - Diarrhoea [Not Recovered/Not Resolved]
  - Poor quality sleep [Unknown]
  - Joint swelling [Not Recovered/Not Resolved]
  - Abdominal discomfort [Not Recovered/Not Resolved]
  - Weight decreased [Not Recovered/Not Resolved]
  - Fluid retention [Unknown]
  - Injection site erythema [Not Recovered/Not Resolved]
  - Sleep disorder [Unknown]
  - Headache [Recovered/Resolved]
  - Cough [Not Recovered/Not Resolved]
  - Nausea [Recovered/Resolved]
  - Nasopharyngitis [Unknown]
  - Abdominal pain [Unknown]
  - Abdominal distension [Recovered/Resolved]
  - Incorrect dose administered [Unknown]
  - Product preparation issue [Unknown]

NARRATIVE: CASE EVENT DATE: 20201201
